FAERS Safety Report 12143019 (Version 3)
Quarter: 2016Q4

REPORT INFORMATION
  Report Type: Report from Study
  Country: US (occurrence: US)
  Receive Date: 20160303
  Receipt Date: 20161107
  Transmission Date: 20170207
  Serious: Yes (Life-Threatening, Other)
  Sender: FDA-Public Use
  Company Number: US-ALEXION-A201601348

PATIENT
  Age: 60 Year
  Sex: Female
  Weight: 75.8 kg

DRUGS (26)
  1. ENB-0040 [Suspect]
     Active Substance: ASFOTASE ALFA
     Dosage: 6 MG/KG, QW
     Route: 058
     Dates: start: 20110112, end: 20160218
  2. OMEPRAZOLE. [Concomitant]
     Active Substance: OMEPRAZOLE
     Indication: DYSPEPSIA
     Dosage: 20 MG, PRN
     Route: 048
     Dates: start: 20140819
  3. ENB-0040 [Suspect]
     Active Substance: ASFOTASE ALFA
     Dosage: 6 MG/KG, QW
     Route: 058
     Dates: start: 20160225, end: 20160225
  4. ENB-0040 [Suspect]
     Active Substance: ASFOTASE ALFA
     Dosage: 6 MG/KG, QW
     Route: 058
     Dates: start: 20110112, end: 20160218
  5. ENB-0040 [Suspect]
     Active Substance: ASFOTASE ALFA
     Dosage: 6 MG/KG, QW
     Route: 058
     Dates: start: 20110112, end: 20160218
  6. ENB-0040 [Suspect]
     Active Substance: ASFOTASE ALFA
     Dosage: 6 MG/KG, QW
     Route: 058
     Dates: start: 20110112, end: 20160218
  7. CITALOPRAM [Concomitant]
     Active Substance: CITALOPRAM HYDROBROMIDE
     Indication: DEPRESSION
     Dosage: 40 MG, QD
     Route: 048
     Dates: start: 201012
  8. ENB-0040 [Suspect]
     Active Substance: ASFOTASE ALFA
     Dosage: 6 MG/KG, QW
     Route: 058
     Dates: start: 20110112, end: 20160218
  9. ENB-0040 [Suspect]
     Active Substance: ASFOTASE ALFA
     Dosage: 6 MG/KG, QW
     Route: 058
     Dates: start: 20110112, end: 20160218
  10. ENB-0040 [Suspect]
     Active Substance: ASFOTASE ALFA
     Dosage: 6 MG/KG, QW
     Route: 058
     Dates: start: 20110112, end: 20160218
  11. ENB-0040 [Suspect]
     Active Substance: ASFOTASE ALFA
     Dosage: 6 MG/KG, QW
     Route: 058
     Dates: start: 20110112, end: 20160218
  12. ENB-0040 [Suspect]
     Active Substance: ASFOTASE ALFA
     Dosage: 6 MG/KG, QW
     Route: 058
     Dates: start: 20110112, end: 20160218
  13. ENB-0040 [Suspect]
     Active Substance: ASFOTASE ALFA
     Dosage: 6 MG/KG, QW
     Route: 058
     Dates: start: 20110112, end: 20160218
  14. ENB-0040 [Suspect]
     Active Substance: ASFOTASE ALFA
     Dosage: 6 MG/KG, QW
     Route: 058
     Dates: start: 20110112, end: 20160218
  15. ENB-0040 [Suspect]
     Active Substance: ASFOTASE ALFA
     Dosage: 6 MG/KG, QW
     Route: 058
     Dates: start: 20110112, end: 20160218
  16. ENB-0040 [Suspect]
     Active Substance: ASFOTASE ALFA
     Indication: HYPOPHOSPHATASIA
     Dosage: 6 MG/KG, QW
     Route: 058
     Dates: start: 20110112, end: 20160218
  17. ENB-0040 [Suspect]
     Active Substance: ASFOTASE ALFA
     Dosage: 6 MG/KG, QW
     Route: 058
     Dates: start: 20110112, end: 20160218
  18. ENB-0040 [Suspect]
     Active Substance: ASFOTASE ALFA
     Dosage: 6 MG/KG, QW
     Route: 058
     Dates: start: 20110112, end: 20160218
  19. ENB-0040 [Suspect]
     Active Substance: ASFOTASE ALFA
     Dosage: 6 MG/KG, QW
     Route: 058
     Dates: start: 20110112, end: 20160218
  20. ENB-0040 [Suspect]
     Active Substance: ASFOTASE ALFA
     Dosage: 6 MG/KG, QW
     Route: 058
     Dates: start: 20110112, end: 20160218
  21. ENB-0040 [Suspect]
     Active Substance: ASFOTASE ALFA
     Dosage: 6 MG/KG, QW
     Route: 058
     Dates: start: 20110112, end: 20160218
  22. ENB-0040 [Suspect]
     Active Substance: ASFOTASE ALFA
     Dosage: 6 MG/KG, QW
     Route: 058
     Dates: start: 20110112, end: 20160218
  23. ENB-0040 [Suspect]
     Active Substance: ASFOTASE ALFA
     Dosage: 6 MG/KG, QW
     Route: 058
     Dates: start: 20110112, end: 20160218
  24. ENB-0040 [Suspect]
     Active Substance: ASFOTASE ALFA
     Dosage: 6 MG/KG, QW
     Route: 058
     Dates: start: 20110112, end: 20160218
  25. ENB-0040 [Suspect]
     Active Substance: ASFOTASE ALFA
     Dosage: 6 MG/KG, QW
     Route: 058
     Dates: start: 20110112, end: 20160218
  26. ENB-0040 [Suspect]
     Active Substance: ASFOTASE ALFA
     Dosage: 6 MG/KG, QW
     Route: 058
     Dates: start: 20110112, end: 20160218

REACTIONS (2)
  - Anaphylactoid reaction [Recovered/Resolved]
  - Hypersensitivity [Recovered/Resolved]

NARRATIVE: CASE EVENT DATE: 20160218
